FAERS Safety Report 8789844 (Version 4)
Quarter: 2013Q1

REPORT INFORMATION
  Report Type: Spontaneous
  Country: US (occurrence: US)
  Receive Date: 20120917
  Receipt Date: 20130305
  Transmission Date: 20140127
  Serious: Yes (Hospitalization)
  Sender: FDA-Public Use
  Company Number: US-BAYER-2012-095449

PATIENT
  Age: 19 Year
  Sex: Male
  Weight: 54 kg

DRUGS (2)
  1. EOVIST [Suspect]
     Indication: HEPATIC LESION
     Dosage: 11 ML, ONCE
     Route: 042
     Dates: start: 20120829, end: 20120829
  2. EOVIST [Suspect]
     Indication: NUCLEAR MAGNETIC RESONANCE IMAGING ABDOMINAL

REACTIONS (8)
  - Anaphylactic reaction [None]
  - Sneezing [None]
  - Dyspnoea [None]
  - Erythema [None]
  - Eye swelling [None]
  - Feeling hot [None]
  - Respiratory distress [None]
  - Face oedema [None]
